FAERS Safety Report 16884828 (Version 1)
Quarter: 2019Q4

REPORT INFORMATION
  Report Type: Spontaneous
  Country: BR (occurrence: BR)
  Receive Date: 20191004
  Receipt Date: 20191004
  Transmission Date: 20200122
  Serious: Yes (Other)
  Sender: FDA-Public Use
  Company Number: BR-BAYER-2019-175162

PATIENT
  Age: 49 Year
  Sex: Female

DRUGS (2)
  1. MIRENA [Suspect]
     Active Substance: LEVONORGESTREL
     Indication: CONTRACEPTION
  2. MIRENA [Suspect]
     Active Substance: LEVONORGESTREL
     Indication: CONTRACEPTION
     Dosage: 20 MCG/24HR, CONT
     Route: 015
     Dates: start: 201901, end: 20190919

REACTIONS (4)
  - Vaginal haemorrhage [Recovering/Resolving]
  - Device expulsion [Recovered/Resolved]
  - Complication of device removal [Recovering/Resolving]
  - Vulvovaginal injury [Recovering/Resolving]

NARRATIVE: CASE EVENT DATE: 20190919
